FAERS Safety Report 15452411 (Version 1)
Quarter: 2018Q4

REPORT INFORMATION
  Report Type: Report from Study
  Country: US (occurrence: US)
  Receive Date: 20181001
  Receipt Date: 20181001
  Transmission Date: 20190204
  Serious: Yes (Hospitalization)
  Sender: FDA-Public Use
  Company Number: US-JNJFOC-20180934272

PATIENT
  Age: 71 Year
  Sex: Male
  Weight: 87 kg

DRUGS (15)
  1. ABIRATERONE ACETATE. [Suspect]
     Active Substance: ABIRATERONE ACETATE
     Indication: HORMONE-REFRACTORY PROSTATE CANCER
     Route: 048
     Dates: start: 20180625, end: 20180910
  2. ACETAMINOPHEN. [Concomitant]
     Active Substance: ACETAMINOPHEN
     Indication: PAIN
     Dosage: FREQUENCY: AS NEEDED
     Route: 048
     Dates: start: 2016
  3. VITAMIN D3 [Concomitant]
     Active Substance: CHOLECALCIFEROL
     Indication: NUTRITIONAL SUPPLEMENTATION
     Route: 048
     Dates: start: 2015
  4. IMODIUM [Concomitant]
     Active Substance: LOPERAMIDE HYDROCHLORIDE
     Indication: DIARRHOEA
     Route: 048
     Dates: start: 20180701
  5. COMPAZINE [Concomitant]
     Active Substance: PROCHLORPERAZINE MALEATE
     Indication: NAUSEA
     Route: 048
     Dates: start: 20180808
  6. VOLTAREN [Concomitant]
     Active Substance: DICLOFENAC SODIUM
     Indication: PAIN
     Route: 061
     Dates: start: 2016
  7. CALCIUM CITRATE [Concomitant]
     Active Substance: CALCIUM CITRATE
     Indication: NUTRITIONAL SUPPLEMENTATION
     Route: 048
     Dates: start: 2015
  8. IBUPROFEN. [Concomitant]
     Active Substance: IBUPROFEN
     Indication: PAIN
     Route: 048
     Dates: start: 2017
  9. ENOXAPARIN [Concomitant]
     Active Substance: ENOXAPARIN
     Indication: CEREBROVASCULAR ACCIDENT
     Route: 058
     Dates: start: 20180719
  10. ROSUVASTATIN. [Concomitant]
     Active Substance: ROSUVASTATIN
     Indication: HYPERLIPIDAEMIA
     Route: 048
     Dates: start: 200804
  11. TIZANIDINE. [Concomitant]
     Active Substance: TIZANIDINE
     Indication: MUSCLE SPASMS
     Dosage: FREQUENCY: AS NEEDED
     Route: 048
     Dates: start: 20180627
  12. TUMS [Concomitant]
     Active Substance: CALCIUM CARBONATE
     Indication: NAUSEA
     Route: 048
     Dates: start: 201808
  13. ABIRATERONE ACETATE. [Suspect]
     Active Substance: ABIRATERONE ACETATE
     Indication: HORMONE-REFRACTORY PROSTATE CANCER
     Route: 048
  14. LEUPRORELIN [Concomitant]
     Active Substance: LEUPROLIDE ACETATE
     Indication: PROSTATE CANCER
     Route: 030
     Dates: start: 201002
  15. PROLIA [Concomitant]
     Active Substance: DENOSUMAB
     Indication: OSTEOPENIA
     Route: 058
     Dates: start: 201706

REACTIONS (1)
  - Systemic inflammatory response syndrome [Recovered/Resolved]

NARRATIVE: CASE EVENT DATE: 20180910
